FAERS Safety Report 4752578-6 (Version None)
Quarter: 2005Q3

REPORT INFORMATION
  Report Type: 
  Country: None (occurrence: None)
  Receive Date: 20050825
  Receipt Date: 20050801
  Transmission Date: 20060218
  Serious: Yes (Death)
  Sender: FDA-Public Use
  Company Number: FI-NOVOPROD-245994

PATIENT
  Age: 45 Year
  Sex: Male
  Weight: 56 kg

DRUGS (7)
  1. NOVOSEVEN [Suspect]
     Indication: HAEMORRHAGE
     Dosage: 43 UG/KG, SINGLE
     Dates: start: 20020617
  2. APROTININ [Concomitant]
  3. RED BLOOD CELLS [Concomitant]
  4. FRESH FROZEN PLASMA [Concomitant]
  5. PLATELETS [Concomitant]
  6. HAEMOCOMPLETTAN [Concomitant]
     Dosage: 3 G, UNK
  7. HUMATE-P [Concomitant]
     Dosage: 1000 IU, UNK

REACTIONS (3)
  - ACUTE MYOCARDIAL INFARCTION [None]
  - GRAFT DYSFUNCTION [None]
  - POST PROCEDURAL COMPLICATION [None]
